FAERS Safety Report 6750910-5 (Version None)
Quarter: 2010Q2

REPORT INFORMATION
  Report Type: 
  Country: None (occurrence: None)
  Receive Date: 20100602
  Receipt Date: 20100524
  Transmission Date: 20101027
  Serious: Yes (Other)
  Sender: FDA-Public Use
  Company Number: PHHY2010JP34379

PATIENT

DRUGS (2)
  1. ZOMETA [Suspect]
     Dosage: 4 MG, UNK
     Route: 041
  2. TAXOTERE [Suspect]
     Dosage: UNK

REACTIONS (2)
  - BONE MARROW FAILURE [None]
  - NEUROPATHY PERIPHERAL [None]
